FAERS Safety Report 12261629 (Version 3)
Quarter: 2016Q2

REPORT INFORMATION
  Report Type: Spontaneous
  Country: US (occurrence: US)
  Receive Date: 20160413
  Receipt Date: 20160527
  Transmission Date: 20160815
  Serious: Yes (Other)
  Sender: FDA-Public Use
  Company Number: US-009507513-1604USA003595

PATIENT
  Age: 14 Year
  Sex: Female

DRUGS (2)
  1. NEXPLANON [Suspect]
     Active Substance: ETONOGESTREL
     Dosage: 1 ROD EVERY 3 YEARS
     Route: 023
     Dates: start: 20160304, end: 20160404
  2. NEXPLANON [Suspect]
     Active Substance: ETONOGESTREL
     Indication: CONTRACEPTION
     Dosage: 1 ROD EVERY 3 YEARS
     Route: 023
     Dates: start: 201604

REACTIONS (6)
  - Device expulsion [Recovered/Resolved]
  - Implant site pain [Unknown]
  - Device deployment issue [Recovered/Resolved]
  - Device dislocation [Recovered/Resolved]
  - Complication associated with device [Recovered/Resolved]
  - Device difficult to use [Recovered/Resolved]

NARRATIVE: CASE EVENT DATE: 2016
